FAERS Safety Report 4808936-4 (Version None)
Quarter: 2005Q4

REPORT INFORMATION
  Report Type: 
  Country: None (occurrence: None)
  Receive Date: 20051025
  Receipt Date: 20051017
  Transmission Date: 20060501
  Serious: Yes (Hospitalization)
  Sender: FDA-Public Use
  Company Number: JP-JNJFOC-20051003504

PATIENT
  Age: 69 Year
  Sex: Male

DRUGS (16)
  1. OFLOCET [Suspect]
     Indication: HYDRONEPHROSIS
     Route: 042
     Dates: start: 20050819, end: 20050819
  2. OFLOCET [Suspect]
     Route: 042
     Dates: start: 20050819, end: 20050819
  3. LASILIX [Suspect]
     Route: 048
  4. LASILIX [Suspect]
     Indication: DRUG USE FOR UNKNOWN INDICATION
     Route: 048
  5. PREVISCAN [Interacting]
     Indication: DRUG USE FOR UNKNOWN INDICATION
     Route: 048
     Dates: end: 20050818
  6. GENTAMICIN SULFATE [Suspect]
     Indication: HYDRONEPHROSIS
     Route: 065
     Dates: start: 20050819, end: 20050819
  7. GENTAMICIN SULFATE [Suspect]
     Route: 065
     Dates: start: 20050819, end: 20050819
  8. ROCEPHIN [Suspect]
     Indication: HYDRONEPHROSIS
     Route: 065
     Dates: start: 20050819, end: 20050819
  9. ROCEPHIN [Suspect]
     Route: 065
     Dates: start: 20050819, end: 20050819
  10. PERFALGAN [Suspect]
     Indication: DRUG USE FOR UNKNOWN INDICATION
     Route: 042
     Dates: start: 20050819, end: 20050819
  11. CORTANCYL [Concomitant]
     Route: 048
  12. CORDARONE [Concomitant]
     Route: 048
  13. SANDIMMUNE [Concomitant]
     Route: 065
  14. NICARDIPINE HCL [Concomitant]
     Route: 048
  15. ENALAPRIL MALEATE [Concomitant]
     Route: 065
  16. ALLOPURINOL [Concomitant]
     Route: 065

REACTIONS (3)
  - DRUG INTERACTION [None]
  - INTERNATIONAL NORMALISED RATIO INCREASED [None]
  - PROTHROMBIN TIME SHORTENED [None]
